FAERS Safety Report 12917500 (Version 1)
Quarter: 2016Q4

REPORT INFORMATION
  Report Type: Spontaneous
  Country: US (occurrence: US)
  Receive Date: 20161107
  Receipt Date: 20161107
  Transmission Date: 20170207
  Serious: No
  Sender: FDA-Public Use
  Company Number: US-PFIZER INC-2016516555

PATIENT
  Age: 46 Year
  Sex: Female
  Weight: 100.24 kg

DRUGS (2)
  1. LYRICA [Suspect]
     Active Substance: PREGABALIN
     Indication: FIBROMYALGIA
     Dosage: 50 MG, 1X/DAY (IN THE MORNING)
     Route: 048
  2. LYRICA [Suspect]
     Active Substance: PREGABALIN
     Indication: SPINAL CORD INJURY
     Dosage: 75 MG, 1X/DAY (IN THE MORNING)
     Route: 048

REACTIONS (6)
  - Somnolence [Unknown]
  - Migraine [Unknown]
  - Panic reaction [Not Recovered/Not Resolved]
  - Aggression [Not Recovered/Not Resolved]
  - Emotional poverty [Not Recovered/Not Resolved]
  - Intentional product misuse [Unknown]
